FAERS Safety Report 4765464-2 (Version None)
Quarter: 2005Q3

REPORT INFORMATION
  Report Type: 
  Country: None (occurrence: None)
  Receive Date: 20050908
  Receipt Date: 20050830
  Transmission Date: 20060218
  Serious: Yes (Death)
  Sender: FDA-Public Use
  Company Number: 2005113431

PATIENT
  Age: 62 Year
  Sex: Male

DRUGS (2)
  1. VFEND [Suspect]
     Indication: ASPERGILLOSIS
     Dosage: 400 MG (DAILY), ORAL
     Route: 048
     Dates: start: 20050705, end: 20050701
  2. VFEND [Suspect]
     Indication: ASPERGILLOSIS
     Dosage: 400 MG (DAILY), INTRAVENOUS
     Route: 042
     Dates: start: 20050101

REACTIONS (2)
  - LIVER FUNCTION TEST ABNORMAL [None]
  - PSEUDOMONAL SEPSIS [None]
